FAERS Safety Report 18097611 (Version 2)
Quarter: 2020Q4

REPORT INFORMATION
  Report Type: Report from Study
  Country: US (occurrence: US)
  Receive Date: 20200731
  Receipt Date: 20201030
  Transmission Date: 20210113
  Serious: No
  Sender: FDA-Public Use
  Company Number: NVSC2020US211485

PATIENT
  Age: 52 Year
  Sex: Male

DRUGS (1)
  1. MAYZENT [Suspect]
     Active Substance: SIPONIMOD
     Indication: MULTIPLE SCLEROSIS
     Dosage: 2 MG, QD
     Route: 048
     Dates: start: 20200117

REACTIONS (3)
  - Abdominal discomfort [Unknown]
  - Vomiting projectile [Unknown]
  - Eye pain [Unknown]

NARRATIVE: CASE EVENT DATE: 20200713
